FAERS Safety Report 8620051-0 (Version None)
Quarter: 2012Q3

REPORT INFORMATION
  Report Type: 
  Country: None (occurrence: None)
  Receive Date: 20120824
  Receipt Date: 20120815
  Transmission Date: 20120928
  Serious: No
  Sender: FDA-Public Use
  Company Number: US-009507513-1208USA007054

PATIENT

DRUGS (1)
  1. NEXPLANON [Suspect]
     Indication: CONTRACEPTION
     Dosage: 1 DF, UNK
     Route: 059
     Dates: start: 20120807, end: 20120809

REACTIONS (4)
  - MEDICAL DEVICE COMPLICATION [None]
  - DEVICE EXPULSION [None]
  - IMPLANT SITE PAIN [None]
  - IMPLANT SITE SWELLING [None]
